FAERS Safety Report 7781286-2 (Version None)
Quarter: 2011Q3

REPORT INFORMATION
  Report Type: 
  Country: None (occurrence: None)
  Receive Date: 20110923
  Receipt Date: 20110912
  Transmission Date: 20111222
  Serious: Yes (Hospitalization)
  Sender: FDA-Public Use
  Company Number: 1000024066

PATIENT
  Age: 17 Year
  Sex: Male

DRUGS (2)
  1. INVEGA (PALIPERIDONE) (PALIPERIDONE) [Concomitant]
  2. ESCITALOPRAM [Suspect]
     Indication: SUICIDE ATTEMPT
     Dosage: 10 MG (10 MG, 1 IN 1 D), ORAL
     Route: 048

REACTIONS (2)
  - PRIAPISM [None]
  - OFF LABEL USE [None]
